FAERS Safety Report 6615611-2 (Version None)
Quarter: 2010Q1

REPORT INFORMATION
  Report Type: 
  Country: None (occurrence: None)
  Receive Date: 20100305
  Receipt Date: 20100225
  Transmission Date: 20100710
  Serious: Yes (Other)
  Sender: FDA-Public Use
  Company Number: US-ROCHE-687092

PATIENT
  Sex: Male

DRUGS (3)
  1. PEGASYS [Suspect]
     Indication: HEPATITIS C
     Dosage: FORM: PRE FILLED SYRINGE
     Route: 058
     Dates: start: 20100214
  2. RIBAVIRIN [Suspect]
     Indication: HEPATITIS C
     Dosage: DIVIDED DOSES
     Route: 048
     Dates: start: 20100214
  3. CELLCEPT [Suspect]
     Route: 065

REACTIONS (9)
  - BLOOD BILIRUBIN INCREASED [None]
  - DECREASED APPETITE [None]
  - INTRAOCULAR PRESSURE INCREASED [None]
  - MALAISE [None]
  - NAUSEA [None]
  - PLATELET COUNT DECREASED [None]
  - PYREXIA [None]
  - SLEEP DISORDER [None]
  - VISUAL IMPAIRMENT [None]
